APPROVED DRUG PRODUCT: PROPRANOLOL HYDROCHLORIDE
Active Ingredient: PROPRANOLOL HYDROCHLORIDE
Strength: 160MG
Dosage Form/Route: CAPSULE, EXTENDED RELEASE;ORAL
Application: A212026 | Product #004 | TE Code: AB
Applicant: AMTA LABS LTD
Approved: Jan 6, 2020 | RLD: No | RS: No | Type: RX